FAERS Safety Report 8825174 (Version 1)
Quarter: 2012Q4

REPORT INFORMATION
  Report Type: 
  Country: CO (occurrence: CO)
  Receive Date: 20121004
  Receipt Date: 20121004
  Transmission Date: 20130627
  Serious: Yes (Life-Threatening)
  Sender: FDA-Public Use
  Company Number: CO-GLAXOSMITHKLINE-A0996066A

PATIENT
  Sex: Female
  Weight: 68 kg

DRUGS (3)
  1. VOTRIENT [Suspect]
     Indication: RENAL CANCER
     Dosage: 800MG Per day
     Route: 048
     Dates: start: 20120827
  2. CARVEDILOL [Concomitant]
     Indication: HYPERTENSION
     Dosage: 10MG Per day
  3. CLONIDINE [Concomitant]
     Indication: HYPERTENSION
     Dosage: 300MG Per day

REACTIONS (1)
  - Malignant hypertension [Recovering/Resolving]
